FAERS Safety Report 7136061-9 (Version None)
Quarter: 2010Q4

REPORT INFORMATION
  Report Type: 
  Country: None (occurrence: None)
  Receive Date: 20101204
  Receipt Date: 20101129
  Transmission Date: 20110411
  Serious: Yes (Other)
  Sender: FDA-Public Use
  Company Number: CN-BAYER-2010-000054

PATIENT

DRUGS (1)
  1. AVELOX [Suspect]
     Dosage: 400 MG, QD
     Route: 048
     Dates: start: 20101123, end: 20101124

REACTIONS (2)
  - LIVER FUNCTION TEST ABNORMAL [None]
  - PAIN IN EXTREMITY [None]
